FAERS Safety Report 26193297 (Version 1)
Quarter: 2025Q4

REPORT INFORMATION
  Report Type: Report from Study
  Country: US (occurrence: US)
  Receive Date: 20251223
  Receipt Date: 20251223
  Transmission Date: 20260117
  Serious: Yes (Other)
  Sender: MALLINCKRODT
  Company Number: US-MALLINCKRODT-MNK202507999

PATIENT
  Sex: Female

DRUGS (2)
  1. CORTICOTROPIN [Suspect]
     Active Substance: CORTICOTROPIN
     Indication: Keratitis
     Dosage: UNKNOWN
  2. RITUXIMAB [Concomitant]
     Active Substance: RITUXIMAB
     Dosage: UNKNOWN

REACTIONS (5)
  - Mucous membrane pemphigoid [Unknown]
  - Contusion [Unknown]
  - Photophobia [Unknown]
  - Migraine [Unknown]
  - Eye swelling [Unknown]
